FAERS Safety Report 22077026 (Version 2)
Quarter: 2023Q1

REPORT INFORMATION
  Report Type: Other
  Country: JP (occurrence: JP)
  Receive Date: 20230309
  Receipt Date: 20230320
  Transmission Date: 20230418
  Serious: Yes (Other)
  Sender: FDA-Public Use
  Company Number: JP-CHUGAI-2023007147AA

PATIENT
  Age: 73 Year
  Sex: Male

DRUGS (4)
  1. ATEZOLIZUMAB [Suspect]
     Active Substance: ATEZOLIZUMAB
     Indication: Neuroendocrine tumour of the lung
     Dosage: 1200 MILLIGRAM, QD
     Route: 041
     Dates: start: 20220915
  2. BEVACIZUMAB [Suspect]
     Active Substance: BEVACIZUMAB
     Indication: Neuroendocrine tumour of the lung
     Dosage: 15 MILLIGRAM/KILOGRAM, QD
     Route: 041
     Dates: start: 20220915, end: 20230127
  3. CARBOPLATIN [Suspect]
     Active Substance: CARBOPLATIN
     Indication: Neuroendocrine tumour of the lung
     Dosage: UNK
     Route: 041
  4. PACLITAXEL [Suspect]
     Active Substance: PACLITAXEL
     Indication: Neuroendocrine tumour of the lung
     Dosage: UNK
     Route: 041

REACTIONS (4)
  - Cerebral haemorrhage [Not Recovered/Not Resolved]
  - Metastases to central nervous system [Unknown]
  - Off label use [Unknown]
  - Protein urine present [Unknown]

NARRATIVE: CASE EVENT DATE: 20230218
